FAERS Safety Report 5647761-1 (Version None)
Quarter: 2008Q1

REPORT INFORMATION
  Report Type: 
  Country: None (occurrence: None)
  Receive Date: 20080228
  Receipt Date: 20080219
  Transmission Date: 20080703
  Serious: Yes (Hospitalization)
  Sender: FDA-Public Use
  Company Number: 2008BI002822

PATIENT
  Age: 31 Year
  Sex: Male

DRUGS (1)
  1. TYSABRI [Suspect]
     Indication: MULTIPLE SCLEROSIS
     Dosage: 300 MG; QM; IV
     Route: 042
     Dates: start: 20061006

REACTIONS (5)
  - ASTHENIA [None]
  - DISEASE PROGRESSION [None]
  - IMPAIRED GASTRIC EMPTYING [None]
  - MULTIPLE SCLEROSIS [None]
  - PNEUMONIA [None]
